FAERS Safety Report 21846093 (Version 2)
Quarter: 2023Q1

REPORT INFORMATION
  Report Type: Report from Study
  Country: US (occurrence: US)
  Receive Date: 20230111
  Receipt Date: 20230122
  Transmission Date: 20230417
  Serious: No
  Sender: FDA-Public Use
  Company Number: US-ABBVIE-4263980

PATIENT
  Sex: Male
  Weight: 122.46 kg

DRUGS (4)
  1. SKYRIZI [Suspect]
     Active Substance: RISANKIZUMAB-RZAA
     Indication: Psoriasis
     Route: 058
     Dates: start: 202211
  2. SKYRIZI [Suspect]
     Active Substance: RISANKIZUMAB-RZAA
     Route: 058
     Dates: start: 20220709, end: 20220709
  3. SKYRIZI [Suspect]
     Active Substance: RISANKIZUMAB-RZAA
     Route: 058
     Dates: start: 202208, end: 202208
  4. IBUPROFEN [Concomitant]
     Active Substance: IBUPROFEN
     Indication: Arthralgia

REACTIONS (3)
  - Abscess [Not Recovered/Not Resolved]
  - Diabetes mellitus [Unknown]
  - Hypertension [Unknown]
